FAERS Safety Report 10175649 (Version 1)
Quarter: 2014Q2

REPORT INFORMATION
  Report Type: Spontaneous
  Country: US (occurrence: US)
  Receive Date: 20140516
  Receipt Date: 20140516
  Transmission Date: 20141212
  Serious: No
  Sender: FDA-Public Use
  Company Number: US-BIOGENIDEC-2014BI045547

PATIENT
  Sex: Female

DRUGS (1)
  1. AVONEX [Suspect]
     Indication: MULTIPLE SCLEROSIS
     Route: 030
     Dates: start: 1996, end: 2000

REACTIONS (4)
  - Optic neuritis [Recovered/Resolved]
  - Hypoaesthesia [Recovered/Resolved]
  - Peripheral swelling [Recovered/Resolved]
  - Influenza like illness [Recovered/Resolved]
